FAERS Safety Report 22519010 (Version 2)
Quarter: 2023Q2

REPORT INFORMATION
  Report Type: Other
  Country: HR (occurrence: HR)
  Receive Date: 20230605
  Receipt Date: 20230630
  Transmission Date: 20230722
  Serious: Yes (Hospitalization)
  Sender: FDA-Public Use
  Company Number: HR-ROCHE-3361241

PATIENT
  Age: 50 Year
  Sex: Male
  Weight: 70 kg

DRUGS (5)
  1. CAPECITABINE [Suspect]
     Active Substance: CAPECITABINE
     Indication: Gastrooesophageal cancer
     Route: 048
     Dates: start: 202006
  2. TRASTUZUMAB [Suspect]
     Active Substance: TRASTUZUMAB
     Indication: Gastrooesophageal cancer
     Route: 065
     Dates: start: 202006
  3. CISPLATIN [Suspect]
     Active Substance: CISPLATIN
     Indication: Gastrooesophageal cancer
     Route: 065
     Dates: start: 202006
  4. PACLITAXEL [Concomitant]
     Active Substance: PACLITAXEL
  5. RAMUCIRUMAB [Concomitant]
     Active Substance: RAMUCIRUMAB

REACTIONS (4)
  - Disease progression [Recovering/Resolving]
  - Metastases to liver [Recovering/Resolving]
  - Metastasis [Recovering/Resolving]
  - Neoplasm progression [Recovering/Resolving]
